FAERS Safety Report 24001202 (Version 1)
Quarter: 2024Q2

REPORT INFORMATION
  Report Type: Spontaneous
  Country: FR (occurrence: None)
  Receive Date: 20240621
  Receipt Date: 20240621
  Transmission Date: 20240716
  Serious: Yes (Hospitalization)
  Sender: FDA-Public Use
  Company Number: 2024A142786

PATIENT
  Age: 37 Year
  Sex: Female

DRUGS (2)
  1. QUETIAPINE [Suspect]
     Active Substance: QUETIAPINE
     Dosage: SHE HAD TAKEN 3 EMPTY QUETIAPINE BLISTER PACKS OF 10-12CP EACH AROUND 11 A.M
     Dates: start: 20201001
  2. XANAX [Suspect]
     Active Substance: ALPRAZOLAM
     Dosage: UNKNOWN

REACTIONS (2)
  - Poisoning deliberate [Recovering/Resolving]
  - Altered state of consciousness [Unknown]

NARRATIVE: CASE EVENT DATE: 20240518
